FAERS Safety Report 9852112 (Version 1)
Quarter: 2014Q1

REPORT INFORMATION
  Report Type: Spontaneous
  Country: US (occurrence: None)
  Receive Date: 20140127
  Receipt Date: 20140127
  Transmission Date: 20141002
  Serious: Yes (Hospitalization)
  Sender: FDA-Public Use
  Company Number: UTC-042875

PATIENT
  Age: 70 Year
  Sex: Female
  Weight: 94.1 kg

DRUGS (3)
  1. TYVASO (6 MICROGRAM, AEROSOL FOR INHALATION) (TREPROSTINIL SODIUM) [Suspect]
     Indication: PULMONARY ARTERIAL HYPERTENSION
     Route: 055
     Dates: start: 20131028
  2. LETAIRIS (AMBRISENTAN) (TABLET) (AMBRISENTAN) [Suspect]
     Indication: PULMONARY ARTERIAL HYPERTENSION
     Route: 048
     Dates: start: 20131008, end: 20131230
  3. REVATIO (SILDENAFIL CITRATE) [Concomitant]

REACTIONS (5)
  - Fluid retention [None]
  - Oedema [None]
  - Swelling [None]
  - Dyspnoea [None]
  - Movement disorder [None]
